FAERS Safety Report 6550840-8 (Version None)
Quarter: 2010Q1

REPORT INFORMATION
  Report Type: 
  Country: None (occurrence: None)
  Receive Date: 20100122
  Receipt Date: 20100122
  Transmission Date: 20100710
  Serious: Yes (Hospitalization)
  Sender: FDA-Public Use
  Company Number: None

PATIENT
  Sex: Female
  Weight: 6.78 kg

DRUGS (41)
  1. METHOTREXATE [Suspect]
     Dosage: 2.5 MG
  2. THIOTEPA [Suspect]
     Dosage: 134 MG
  3. VINCRISTINE [Suspect]
     Dosage: 3.71 MG
  4. LEUCOVORIN CALCIUM [Suspect]
     Dosage: 24 MG
  5. MESNA [Suspect]
     Dosage: 680 MG
  6. CARBOPLATIN [Suspect]
     Dosage: 230 MG
  7. CISPLATIN [Suspect]
     Dosage: 39 MG
  8. CYCLOPHOSPHAMIDE [Suspect]
     Dosage: 1340 MG
  9. ETOPOSIDE [Suspect]
     Dosage: 84 MG
  10. G-CSF (FILGRASTIM, AMGEN) [Suspect]
     Dosage: 1918 MCG
  11. AMBISOME [Concomitant]
  12. AMPHOTERICIN B [Concomitant]
  13. ATIVAN [Concomitant]
  14. BOSENTAN [Concomitant]
  15. CHLORAL HYDRATE [Concomitant]
  16. CIPROFLOXACIM [Concomitant]
  17. CLONIDINE [Concomitant]
  18. DIPENHYDRAMINE [Concomitant]
  19. FENTANYL [Concomitant]
  20. FRUSEMIDE [Concomitant]
  21. FUROSEMIDE [Concomitant]
  22. HYDRALAZINE [Concomitant]
  23. INO [Concomitant]
  24. LACTULOSE [Concomitant]
  25. LASIX [Concomitant]
  26. LORAZEPAM [Concomitant]
  27. MEROPENEM [Concomitant]
  28. METHYLPREDNISOLONE ACETATE [Concomitant]
  29. METOCLOPRAMIDE [Concomitant]
  30. MILRINONE [Concomitant]
  31. MORPHINE [Concomitant]
  32. NITRIC OXIDE [Concomitant]
  33. PAERALYSIS [Concomitant]
  34. PANCURONIUM BROMIDE [Concomitant]
  35. PANTOPRAZOLE [Concomitant]
  36. PENICILIN [Concomitant]
  37. PENTAMIDE [Concomitant]
  38. RANITIDINE [Concomitant]
  39. RIFAMPIN [Concomitant]
  40. SODIUM BICARB [Concomitant]
  41. VANCOMYCIN [Concomitant]

REACTIONS (12)
  - BLOOD BILIRUBIN UNCONJUGATED INCREASED [None]
  - DRUG TOXICITY [None]
  - GAMMA-GLUTAMYLTRANSFERASE INCREASED [None]
  - GENERAL PHYSICAL HEALTH DETERIORATION [None]
  - GLOMERULAR FILTRATION RATE INCREASED [None]
  - LEUKOPENIA [None]
  - LIVER FUNCTION TEST ABNORMAL [None]
  - NEUTROPHIL COUNT DECREASED [None]
  - PULMONARY VENO-OCCLUSIVE DISEASE [None]
  - RESPIRATORY FAILURE [None]
  - STEM CELL TRANSPLANT [None]
  - TACHYPNOEA [None]
